FAERS Safety Report 13082133 (Version 2)
Quarter: 2017Q1

REPORT INFORMATION
  Report Type: Report from Study
  Country: ES (occurrence: ES)
  Receive Date: 20170103
  Receipt Date: 20170119
  Transmission Date: 20170428
  Serious: Yes (Death, Hospitalization)
  Sender: FDA-Public Use
  Company Number: ES-CELGENEUS-ESP-2016111731

PATIENT
  Age: 70 Year
  Sex: Male

DRUGS (3)
  1. ABRAXANE [Suspect]
     Active Substance: PACLITAXEL
     Indication: NON-SMALL CELL LUNG CANCER STAGE IV
     Dosage: 100 MILLIGRAM/SQ. METER
     Route: 041
     Dates: start: 20161013
  2. ATEZOLIZUMAB [Suspect]
     Active Substance: ATEZOLIZUMAB
     Indication: NON-SMALL CELL LUNG CANCER STAGE IV
     Dosage: 1200 MILLIGRAM
     Route: 041
     Dates: start: 20161013
  3. CARBOPLATIN. [Suspect]
     Active Substance: CARBOPLATIN
     Indication: NON-SMALL CELL LUNG CANCER STAGE IV
     Dosage: AUC=6MG/ML/MIN
     Route: 041
     Dates: start: 20161013

REACTIONS (1)
  - Hepatic cirrhosis [Fatal]

NARRATIVE: CASE EVENT DATE: 20161020
